FAERS Safety Report 9854062 (Version 1)
Quarter: 2014Q1

REPORT INFORMATION
  Report Type: Spontaneous
  Country: US (occurrence: US)
  Receive Date: 20140129
  Receipt Date: 20140129
  Transmission Date: 20141002
  Serious: No
  Sender: FDA-Public Use
  Company Number: US-PFIZER INC-2014026888

PATIENT
  Sex: Male

DRUGS (4)
  1. CHANTIX [Suspect]
     Dosage: UNK
  2. VIIBRYD [Suspect]
     Dosage: 10 MG, DAILY (1 IN 1 D)
     Dates: start: 20131116, end: 2013
  3. VIIBRYD [Suspect]
     Dosage: 20 MG, DAILY
     Dates: start: 2013, end: 2013
  4. VIIBRYD [Suspect]
     Dosage: 40 MG, DAILY (1 IN 1 D)
     Dates: start: 20131222

REACTIONS (1)
  - Insomnia [Not Recovered/Not Resolved]
